FAERS Safety Report 10961049 (Version 1)
Quarter: 2015Q1

REPORT INFORMATION
  Report Type: Spontaneous
  Country: US (occurrence: US)
  Receive Date: 20150327
  Receipt Date: 20150327
  Transmission Date: 20150721
  Serious: Yes (Death)
  Sender: FDA-Public Use
  Company Number: US-CIPLA LTD.-2015US02306

PATIENT

DRUGS (9)
  1. FLUOXETINE [Suspect]
     Active Substance: FLUOXETINE\FLUOXETINE HYDROCHLORIDE
  2. PHENTERMINE [Suspect]
     Active Substance: PHENTERMINE
  3. BUPROPION [Suspect]
     Active Substance: BUPROPION
  4. DOXYLAMINE [Suspect]
     Active Substance: DOXYLAMINE
  5. SERTRALINE [Suspect]
     Active Substance: SERTRALINE HYDROCHLORIDE
  6. PSEUDOEPHEDRINE [Suspect]
     Active Substance: PSEUDOEPHEDRINE
  7. DEXTROMETHORPHAN [Suspect]
     Active Substance: DEXTROMETHORPHAN
  8. ACETAMINOPHEN. [Suspect]
     Active Substance: ACETAMINOPHEN
  9. HYDROCODONE [Suspect]
     Active Substance: HYDROCODONE

REACTIONS (1)
  - Completed suicide [Fatal]
